FAERS Safety Report 7223749-4 (Version None)
Quarter: 2011Q1

REPORT INFORMATION
  Report Type: 
  Country: None (occurrence: None)
  Receive Date: 20110112
  Receipt Date: 20101109
  Transmission Date: 20110831
  Serious: No
  Sender: FDA-Public Use
  Company Number: US-ALLERGAN-1014487US

PATIENT
  Age: 82 Year
  Sex: Female

DRUGS (3)
  1. RESTASIS [Suspect]
     Indication: MACULAR DEGENERATION
     Dosage: 1 GTT, BID
     Route: 047
     Dates: start: 20100201, end: 20100301
  2. RESTASIS [Suspect]
     Indication: EYE IRRITATION
  3. TEARS PLUS SOLUTION [Concomitant]
     Indication: DRY EYE
     Dosage: 1 GTT, TID
     Route: 047

REACTIONS (2)
  - EYE IRRITATION [None]
  - VISION BLURRED [None]
